FAERS Safety Report 10432408 (Version 1)
Quarter: 2014Q3

REPORT INFORMATION
  Report Type: Spontaneous
  Country: US (occurrence: None)
  Receive Date: 20140904
  Receipt Date: 20140904
  Transmission Date: 20150326
  Serious: Yes (Life-Threatening, Hospitalization)
  Sender: FDA-Public Use
  Company Number: None

PATIENT
  Age: 34 Year
  Sex: Female
  Weight: 50.8 kg

DRUGS (1)
  1. IMURAN [Suspect]
     Active Substance: AZATHIOPRINE
     Indication: COLITIS ULCERATIVE
     Dates: start: 20140601, end: 20140609

REACTIONS (5)
  - Sepsis [None]
  - Swelling [None]
  - Drug hypersensitivity [None]
  - Pyrexia [None]
  - Erythema nodosum [None]

NARRATIVE: CASE EVENT DATE: 20140609
